FAERS Safety Report 25252823 (Version 1)
Quarter: 2025Q2

REPORT INFORMATION
  Report Type: Spontaneous
  Country: CN (occurrence: CN)
  Receive Date: 20250429
  Receipt Date: 20250429
  Transmission Date: 20250717
  Serious: Yes (Other)
  Sender: JOHNSON AND JOHNSON
  Company Number: CN-JNJFOC-20250431802

PATIENT
  Age: 11 Year
  Sex: Male
  Weight: 36 kg

DRUGS (5)
  1. TOPAMAX [Suspect]
     Active Substance: TOPIRAMATE
     Indication: Tic
     Route: 048
     Dates: start: 20240823, end: 20250227
  2. TOPAMAX [Suspect]
     Active Substance: TOPIRAMATE
     Route: 048
  3. HALOPERIDOL [Concomitant]
     Active Substance: HALOPERIDOL
     Route: 048
  4. TRIHEXYPHENIDYL [Concomitant]
     Active Substance: TRIHEXYPHENIDYL
     Route: 048
  5. CLONAZEPAM [Concomitant]
     Active Substance: CLONAZEPAM
     Route: 048

REACTIONS (5)
  - Mental impairment [Recovering/Resolving]
  - Unresponsive to stimuli [Recovering/Resolving]
  - Learning disorder [Recovering/Resolving]
  - Crying [Recovering/Resolving]
  - Off label use [Unknown]

NARRATIVE: CASE EVENT DATE: 20250227
